FAERS Safety Report 12987986 (Version 2)
Quarter: 2017Q1

REPORT INFORMATION
  Report Type: Spontaneous
  Country: JP (occurrence: JP)
  Receive Date: 20161130
  Receipt Date: 20170110
  Transmission Date: 20170428
  Serious: Yes (Life-Threatening, Disabling, Other)
  Sender: FDA-Public Use
  Company Number: JP-BRISTOL-MYERS SQUIBB COMPANY-BMS-2016-093680

PATIENT
  Age: 67 Year
  Sex: Male
  Weight: 64 kg

DRUGS (3)
  1. ELIQUIS [Suspect]
     Active Substance: APIXABAN
     Indication: PRODUCT USED FOR UNKNOWN INDICATION
     Dosage: 5 MG, BID
     Route: 065
     Dates: start: 20161015, end: 20161021
  2. ELIQUIS [Suspect]
     Active Substance: APIXABAN
     Indication: CEREBROVASCULAR ACCIDENT PROPHYLAXIS
     Dosage: 5 MG, BID
     Route: 065
     Dates: start: 20150106, end: 20161007
  3. DIOVAN [Concomitant]
     Active Substance: VALSARTAN
     Indication: HYPERTENSION
     Dosage: 80 MG, BID
     Route: 065
     Dates: start: 20090710, end: 20161021

REACTIONS (11)
  - Anaemia [Unknown]
  - Shock [Unknown]
  - Metabolic acidosis [Unknown]
  - Transfusion [Unknown]
  - Cerebral haemorrhage [Recovered/Resolved with Sequelae]
  - Cerebral infarction [Unknown]
  - Acute kidney injury [Unknown]
  - Duodenal ulcer haemorrhage [Recovering/Resolving]
  - Continuous haemodiafiltration [Unknown]
  - Platelet count decreased [Unknown]
  - Multiple organ dysfunction syndrome [Unknown]

NARRATIVE: CASE EVENT DATE: 20161007
